FAERS Safety Report 20290799 (Version 1)
Quarter: 2022Q1

REPORT INFORMATION
  Report Type: Spontaneous
  Country: RU (occurrence: None)
  Receive Date: 20220104
  Receipt Date: 20220104
  Transmission Date: 20220423
  Serious: Yes (Other)
  Sender: FDA-Public Use
  Company Number: 2021A908784

PATIENT
  Age: 27 Year
  Sex: Female

DRUGS (1)
  1. SYMBICORT [Suspect]
     Active Substance: BUDESONIDE\FORMOTEROL FUMARATE DIHYDRATE
     Indication: Asthma
     Dosage: 160\4,5 MCG\INHALATION
     Route: 055

REACTIONS (4)
  - COVID-19 [Unknown]
  - Asthma [Unknown]
  - Tachycardia [Unknown]
  - Asthenia [Unknown]
